FAERS Safety Report 6166603-1 (Version None)
Quarter: 2009Q2

REPORT INFORMATION
  Report Type: 
  Country: None (occurrence: None)
  Receive Date: 20090424
  Receipt Date: 20080708
  Transmission Date: 20091009
  Serious: No
  Sender: FDA-Public Use
  Company Number: US-ASTRAZENECA-2008UW13694

PATIENT
  Age: 82 Year
  Sex: Female

DRUGS (3)
  1. ZOMIG [Suspect]
     Indication: MIGRAINE
     Route: 048
  2. TRAZODONE [Concomitant]
  3. TOPAMAX [Concomitant]

REACTIONS (2)
  - HEADACHE [None]
  - WEIGHT DECREASED [None]
